FAERS Safety Report 6568781-9 (Version None)
Quarter: 2010Q1

REPORT INFORMATION
  Report Type: 
  Country: None (occurrence: None)
  Receive Date: 20100128
  Receipt Date: 20100118
  Transmission Date: 20100710
  Serious: Yes (Hospitalization, Other)
  Sender: FDA-Public Use
  Company Number: 2010SP003978

PATIENT
  Age: 34 Year
  Sex: Male

DRUGS (2)
  1. REFLEX (MIRTAZAPINE /01293201/) [Suspect]
     Indication: DEPRESSION
     Dosage: 15 MG; PO, 15 MG; PO
     Route: 048
     Dates: start: 20091001, end: 20091001
  2. REFLEX (MIRTAZAPINE /01293201/) [Suspect]
     Indication: DEPRESSION
     Dosage: 15 MG; PO, 15 MG; PO
     Route: 048
     Dates: start: 20091201, end: 20091201

REACTIONS (1)
  - BLOOD TRIGLYCERIDES INCREASED [None]
